FAERS Safety Report 21936331 (Version 2)
Quarter: 2023Q1

REPORT INFORMATION
  Report Type: Report from Study
  Country: US (occurrence: None)
  Receive Date: 20230201
  Receipt Date: 20230317
  Transmission Date: 20230418
  Serious: Yes (Hospitalization)
  Sender: FDA-Public Use
  Company Number: US-ROCHE-3269812

PATIENT
  Age: 37 Year
  Sex: Male
  Weight: 69.462 kg

DRUGS (1)
  1. MOSUNETUZUMAB [Suspect]
     Active Substance: MOSUNETUZUMAB
     Indication: Follicular lymphoma
     Dosage: ON 17/JAN/2023 (C1D8), 18/JAN/2023 (C1D9), MOST RECENT DOSE MOSUNETUZMAB PRIOR TO AE/SAE
     Route: 058
     Dates: start: 20230110

REACTIONS (1)
  - Ventricular tachycardia [Recovered/Resolved]

NARRATIVE: CASE EVENT DATE: 20230118
